APPROVED DRUG PRODUCT: ALLOPURINOL
Active Ingredient: ALLOPURINOL
Strength: 300MG
Dosage Form/Route: TABLET;ORAL
Application: A204467 | Product #002 | TE Code: AB
Applicant: REGCON HOLDINGS LLC
Approved: Jul 28, 2016 | RLD: No | RS: No | Type: RX